FAERS Safety Report 6633417-5 (Version None)
Quarter: 2010Q1

REPORT INFORMATION
  Report Type: 
  Country: None (occurrence: None)
  Receive Date: 20100312
  Receipt Date: 20100308
  Transmission Date: 20100710
  Serious: Yes (Hospitalization)
  Sender: FDA-Public Use
  Company Number: GB-GILEAD-2010-0027516

PATIENT
  Age: 36 Year
  Sex: Female
  Weight: 37 kg

DRUGS (5)
  1. ATRIPLA [Suspect]
     Indication: HIV INFECTION
     Route: 048
     Dates: start: 20081120, end: 20100119
  2. ADALAT [Concomitant]
  3. CALCICHEW D3 [Concomitant]
  4. COMBIVIR [Concomitant]
     Indication: HIV INFECTION
     Dates: start: 20050101
  5. EFAVIRENZ [Concomitant]
     Indication: HIV INFECTION
     Dates: start: 20050101

REACTIONS (5)
  - ABNORMAL LOSS OF WEIGHT [None]
  - BRADYPHRENIA [None]
  - PARANOIA [None]
  - TACHYCARDIA [None]
  - VOMITING [None]
